FAERS Safety Report 13093748 (Version 1)
Quarter: 2017Q1

REPORT INFORMATION
  Report Type: Spontaneous
  Country: US (occurrence: US)
  Receive Date: 20170106
  Receipt Date: 20170106
  Transmission Date: 20170428
  Serious: Yes (Other)
  Sender: FDA-Public Use
  Company Number: US-TEVA-726356USA

PATIENT
  Age: 58 Year
  Sex: Male
  Weight: 128.03 kg

DRUGS (8)
  1. OMEPRAZOLE. [Concomitant]
     Active Substance: OMEPRAZOLE
  2. TOLTERODINE [Concomitant]
     Active Substance: TOLTERODINE
  3. SIMVASTATIN. [Concomitant]
     Active Substance: SIMVASTATIN
  4. LORAZEPAM. [Concomitant]
     Active Substance: LORAZEPAM
  5. SERTRALINE [Concomitant]
     Active Substance: SERTRALINE HYDROCHLORIDE
  6. ZOLPIDEM [Concomitant]
     Active Substance: ZOLPIDEM\ZOLPIDEM TARTRATE
  7. COPAXONE [Suspect]
     Active Substance: GLATIRAMER ACETATE
     Indication: MULTIPLE SCLEROSIS
     Route: 058
     Dates: start: 201603
  8. AMITRIPYLIN [Concomitant]

REACTIONS (5)
  - Fall [Not Recovered/Not Resolved]
  - Injection site pain [Unknown]
  - Arthropathy [Not Recovered/Not Resolved]
  - Balance disorder [Not Recovered/Not Resolved]
  - Movement disorder [Not Recovered/Not Resolved]

NARRATIVE: CASE EVENT DATE: 201612
